FAERS Safety Report 12311673 (Version 2)
Quarter: 2016Q2

REPORT INFORMATION
  Report Type: Spontaneous
  Country: US (occurrence: US)
  Receive Date: 20160427
  Receipt Date: 20160525
  Transmission Date: 20160815
  Serious: Yes (Life-Threatening, Hospitalization, Other)
  Sender: FDA-Public Use
  Company Number: US-MDT-ADR-2016-00760

PATIENT
  Age: 64 Year
  Sex: Female

DRUGS (4)
  1. COMPOUNDED BUPIVACAINE [Suspect]
     Active Substance: BUPIVACAINE
     Dosage: 0.6 MG / DAY
     Route: 037
  2. BENZODIAZEPINE [Suspect]
     Active Substance: BENZODIAZEPINE
     Route: 048
  3. DILAUDID [Suspect]
     Active Substance: HYDROMORPHONE HYDROCHLORIDE
     Dosage: 3.0 MG / DAY
     Route: 037
  4. COMPOUNDED BACLOFEN [Suspect]
     Active Substance: BACLOFEN
     Dosage: 10 MCG / DAY
     Route: 037

REACTIONS (2)
  - Overdose [Unknown]
  - Unresponsive to stimuli [Unknown]

NARRATIVE: CASE EVENT DATE: 20160422
